FAERS Safety Report 21128968 (Version 1)
Quarter: 2022Q3

REPORT INFORMATION
  Report Type: Spontaneous
  Country: US (occurrence: None)
  Receive Date: 20220725
  Receipt Date: 20220725
  Transmission Date: 20221027
  Serious: No
  Sender: FDA-Public Use
  Company Number: 2022A252868

PATIENT

DRUGS (3)
  1. FARXIGA [Suspect]
     Active Substance: DAPAGLIFLOZIN PROPANEDIOL
     Route: 048
  2. RYBELSUS [Concomitant]
     Active Substance: SEMAGLUTIDE
  3. TRESIBA [Concomitant]
     Active Substance: INSULIN DEGLUDEC

REACTIONS (1)
  - Glycosylated haemoglobin increased [Unknown]
